FAERS Safety Report 6131698-8 (Version None)
Quarter: 2009Q1

REPORT INFORMATION
  Report Type: 
  Country: None (occurrence: None)
  Receive Date: 20090325
  Receipt Date: 20090312
  Transmission Date: 20090719
  Serious: Yes (Hospitalization)
  Sender: FDA-Public Use
  Company Number: US-ROCHE-621466

PATIENT
  Sex: Female

DRUGS (2)
  1. PEG-INTERFERON A-2A (RO 25-8310) [Suspect]
     Indication: HEPATITIS C
     Dosage: PRE FILLED SYRINGE, THERAPY SUSPENDED
     Route: 065
     Dates: start: 20081203, end: 20090101
  2. RIBAVIRIN [Suspect]
     Indication: HEPATITIS C
     Dosage: THERAPY SUSPENDED
     Route: 065
     Dates: start: 20081123, end: 20090101

REACTIONS (5)
  - BLOOD POTASSIUM DECREASED [None]
  - NAUSEA [None]
  - PLEURISY [None]
  - PNEUMONIA [None]
  - WHITE BLOOD CELL COUNT DECREASED [None]
